FAERS Safety Report 8796263 (Version 2)
Quarter: 2013Q2

REPORT INFORMATION
  Report Type: Spontaneous
  Country: US (occurrence: US)
  Receive Date: 20120920
  Receipt Date: 20130521
  Transmission Date: 20140414
  Serious: Yes (Hospitalization)
  Sender: FDA-Public Use
  Company Number: US-BAYER-2012-096918

PATIENT
  Age: 23 Year
  Sex: Female
  Weight: 52.2 kg

DRUGS (7)
  1. YAZ [Suspect]
     Dosage: UNK
     Dates: start: 20080828, end: 20120406
  2. YASMIN [Suspect]
     Dosage: UNK
     Route: 048
     Dates: start: 20080828, end: 20120406
  3. GIANVI [Suspect]
     Dosage: UNK
     Route: 048
     Dates: start: 20080828, end: 20120406
  4. WELLBUTRIN [Concomitant]
     Dosage: 300 MG, DAILY
     Route: 048
  5. THERAGRAN-M [Concomitant]
     Dosage: 1000 U, DAILY
     Route: 048
  6. THERAGRAN-M [Concomitant]
  7. VITAMIN D3 [Concomitant]
     Dosage: 1 TABLET DAILY
     Route: 048

REACTIONS (6)
  - Pulmonary embolism [None]
  - Injury [None]
  - Pain [None]
  - Emotional distress [None]
  - Pain [None]
  - Anhedonia [None]
